FAERS Safety Report 18670689 (Version 3)
Quarter: 2021Q1

REPORT INFORMATION
  Report Type: Spontaneous
  Country: US (occurrence: US)
  Receive Date: 20201228
  Receipt Date: 20210303
  Transmission Date: 20210419
  Serious: No
  Sender: FDA-Public Use
  Company Number: US-AMNEAL PHARMACEUTICALS-2020-AMRX-04006

PATIENT
  Sex: Male

DRUGS (1)
  1. RYTARY [Suspect]
     Active Substance: CARBIDOPA\LEVODOPA
     Indication: PRODUCT USED FOR UNKNOWN INDICATION
     Dosage: 3 CAPSULES, 5X/DAY
     Route: 065
     Dates: start: 20200320, end: 2020

REACTIONS (3)
  - Nausea [Recovered/Resolved]
  - Therapeutic product effect variable [Recovered/Resolved]
  - Fall [Recovered/Resolved]
